FAERS Safety Report 23788721 (Version 1)
Quarter: 2024Q2

REPORT INFORMATION
  Report Type: Spontaneous
  Country: FR (occurrence: FR)
  Receive Date: 20240426
  Receipt Date: 20240426
  Transmission Date: 20240715
  Serious: Yes (Other)
  Sender: FDA-Public Use
  Company Number: None

PATIENT
  Age: 35 Year
  Sex: Male
  Weight: 55 kg

DRUGS (6)
  1. SERTRALINE [Suspect]
     Active Substance: SERTRALINE HYDROCHLORIDE
     Indication: Product used for unknown indication
     Dosage: 50 MILLIGRAM, TOTAL
     Route: 048
     Dates: start: 20240117, end: 20240117
  2. LEVETIRACETAM [Concomitant]
     Active Substance: LEVETIRACETAM
     Dosage: 1000 MILLIGRAM, QD
     Route: 048
     Dates: start: 20240112
  3. NICOTINE [Concomitant]
     Active Substance: NICOTINE
     Dosage: 6 MILLIGRAM, QD
     Route: 048
     Dates: start: 20240113, end: 20240123
  4. CHOLECALCIFEROL [Concomitant]
     Active Substance: CHOLECALCIFEROL
     Dosage: 50000 INTERNATIONAL UNIT, TOTAL
     Route: 048
     Dates: start: 20240117, end: 20240117
  5. NICOTINE [Concomitant]
     Active Substance: NICOTINE
     Dosage: 25 MILLIGRAM, EVERY 16 HOURS
     Route: 062
     Dates: start: 20240113, end: 20240123
  6. NICOTINE [Concomitant]
     Active Substance: NICOTINE
     Dosage: 14 MILLIGRAM, QD
     Route: 062
     Dates: start: 20240115, end: 20240125

REACTIONS (2)
  - Suicide attempt [Unknown]
  - Dyskinesia [Recovered/Resolved]

NARRATIVE: CASE EVENT DATE: 20240117
